FAERS Safety Report 11716810 (Version 2)
Quarter: 2015Q4

REPORT INFORMATION
  Report Type: Spontaneous
  Country: US (occurrence: US)
  Receive Date: 20151104
  Receipt Date: 20151120
  Transmission Date: 20160304
  Serious: No
  Sender: FDA-Public Use
  Company Number: US-ELI_LILLY_AND_COMPANY-US201106002809

PATIENT
  Age: 62 Year
  Sex: Female

DRUGS (1)
  1. FORTEO [Suspect]
     Active Substance: TERIPARATIDE
     Indication: OSTEOPOROSIS
     Dosage: 20 UG, QD
     Dates: start: 20110529

REACTIONS (15)
  - Nausea [Unknown]
  - Depressed mood [Unknown]
  - Injection site pain [Unknown]
  - Dizziness [Unknown]
  - Cushing^s syndrome [Unknown]
  - Pneumonia [Unknown]
  - Tooth disorder [Unknown]
  - Dysstasia [Unknown]
  - Injection site bruising [Unknown]
  - Back pain [Not Recovered/Not Resolved]
  - Secondary adrenocortical insufficiency [Unknown]
  - Somnolence [Unknown]
  - Peripheral swelling [Unknown]
  - Fall [Unknown]
  - Bone pain [Unknown]

NARRATIVE: CASE EVENT DATE: 20110529
